FAERS Safety Report 20782762 (Version 1)
Quarter: 2022Q2

REPORT INFORMATION
  Report Type: Spontaneous
  Country: US (occurrence: US)
  Receive Date: 20220504
  Receipt Date: 20220504
  Transmission Date: 20220721
  Serious: Yes (Other)
  Sender: FDA-Public Use
  Company Number: US-SA-SAC20220428002090

PATIENT
  Age: 46 Year
  Sex: Male

DRUGS (1)
  1. ZANTAC [Suspect]
     Active Substance: RANITIDINE HYDROCHLORIDE
     Dosage: UNK, FREQUENCY : OTHER
     Route: 065
     Dates: start: 201002, end: 202002

REACTIONS (2)
  - Renal cancer stage IV [Not Recovered/Not Resolved]
  - Ovarian cancer stage IV [Unknown]

NARRATIVE: CASE EVENT DATE: 20170608
